FAERS Safety Report 9163663 (Version 1)
Quarter: 2013Q1

REPORT INFORMATION
  Report Type: Spontaneous
  Country: US (occurrence: US)
  Receive Date: 20130314
  Receipt Date: 20130314
  Transmission Date: 20140127
  Serious: Yes (Hospitalization)
  Sender: FDA-Public Use
  Company Number: US-ROCHE-1198957

PATIENT
  Age: 82 Year
  Sex: Male

DRUGS (11)
  1. RITUXAN [Suspect]
     Indication: PRODUCT USED FOR UNKNOWN INDICATION
     Route: 065
  2. MATULANE [Suspect]
     Indication: B-CELL LYMPHOMA
     Route: 048
     Dates: start: 20121211
  3. FLUCONAZOLE [Suspect]
     Indication: PRODUCT USED FOR UNKNOWN INDICATION
     Route: 065
  4. CYTOXAN [Suspect]
     Indication: PRODUCT USED FOR UNKNOWN INDICATION
     Route: 065
  5. ETOPOSIDE [Suspect]
     Indication: PRODUCT USED FOR UNKNOWN INDICATION
     Route: 065
  6. PREDNISONE [Suspect]
     Indication: PRODUCT USED FOR UNKNOWN INDICATION
     Route: 065
  7. ALLOPURINOL [Concomitant]
  8. FUROSEMIDE [Concomitant]
  9. COMPAZINE [Concomitant]
  10. TOPROL [Concomitant]
  11. ZOFRAN [Concomitant]

REACTIONS (11)
  - Pancreatitis [Unknown]
  - Cardiac failure congestive [Unknown]
  - Renal failure chronic [Unknown]
  - Malnutrition [Unknown]
  - Pleural effusion [Unknown]
  - Generalised oedema [Unknown]
  - Leukocytosis [Unknown]
  - Anaemia [Unknown]
  - Hypoalbuminaemia [Unknown]
  - Nausea [Unknown]
  - Pyrexia [Unknown]
